FAERS Safety Report 9351516 (Version 2)
Quarter: 2013Q2

REPORT INFORMATION
  Report Type: Spontaneous
  Country: US (occurrence: US)
  Receive Date: 20130617
  Receipt Date: 20130628
  Transmission Date: 20140414
  Serious: No
  Sender: FDA-Public Use
  Company Number: US-PFIZER INC-2013177383

PATIENT
  Age: 52 Year
  Sex: Male
  Weight: 63.04 kg

DRUGS (2)
  1. VIAGRA [Suspect]
     Indication: ERECTILE DYSFUNCTION
     Dosage: 100 MG, AS NEEDED
     Route: 048
     Dates: start: 2000
  2. NABUMETONE [Concomitant]
     Dosage: UNK

REACTIONS (1)
  - Blood triglycerides increased [Unknown]
